FAERS Safety Report 9013329 (Version 1)
Quarter: 2013Q1

REPORT INFORMATION
  Report Type: Spontaneous
  Country: US (occurrence: US)
  Receive Date: 20130115
  Receipt Date: 20130115
  Transmission Date: 20140127
  Serious: Yes (Other)
  Sender: FDA-Public Use
  Company Number: US-009507513-0909USA03345

PATIENT
  Age: 4 Year
  Sex: Male
  Weight: 18.14 kg

DRUGS (3)
  1. SINGULAIR [Suspect]
     Indication: MULTIPLE ALLERGIES
     Dosage: 5 MG, UNK
     Route: 048
     Dates: start: 20030501, end: 200606
  2. SINGULAIR [Suspect]
     Dosage: 5 MG, UNK
     Route: 048
     Dates: start: 200608, end: 20090901
  3. SINGULAIR [Suspect]
     Dosage: 5 MG, UNK
     Route: 048
     Dates: start: 200609, end: 200609

REACTIONS (6)
  - Abnormal behaviour [Unknown]
  - Crying [Unknown]
  - Enuresis [Recovered/Resolved]
  - Screaming [Unknown]
  - Somnambulism [Unknown]
  - Overdose [Unknown]
